FAERS Safety Report 23311540 (Version 1)
Quarter: 2023Q4

REPORT INFORMATION
  Report Type: Spontaneous
  Country: JP (occurrence: JP)
  Receive Date: 20231219
  Receipt Date: 20231219
  Transmission Date: 20240109
  Serious: Yes (Other)
  Sender: FDA-Public Use
  Company Number: JP-KYOWAKIRIN-2023KK019410

PATIENT
  Age: 42 Year
  Sex: Female

DRUGS (8)
  1. PEGFILGRASTIM [Suspect]
     Active Substance: PEGFILGRASTIM
     Indication: Product used for unknown indication
     Dosage: UNK, THE ADMINISTRATION OF A GRANULOCYTE-COLONY STIMULATING FACTOR (G-CSF) ON DAYS 11 AND 12
     Route: 065
  2. FILGRASTIM [Suspect]
     Active Substance: FILGRASTIM
     Indication: Product used for unknown indication
     Dosage: UNK, THE ADMINISTRATION OF A GRANULOCYTE-COLONY STIMULATING FACTOR (G-CSF) ON DAYS 11 AND 12
     Route: 065
  3. PONATINIB [Suspect]
     Active Substance: PONATINIB
     Indication: Philadelphia positive acute lymphocytic leukaemia
     Dosage: UNK,IN MAR YEAR X
     Route: 065
  4. PONATINIB [Suspect]
     Active Substance: PONATINIB
     Dosage: UNK, RESUMED ON DAY 23
     Route: 065
  5. PREDNISOLONE [Concomitant]
     Active Substance: PREDNISOLONE
     Indication: Philadelphia positive acute lymphocytic leukaemia
     Dosage: UNK
     Route: 065
  6. DAUNORUBICIN [Concomitant]
     Active Substance: DAUNORUBICIN
     Indication: Philadelphia positive acute lymphocytic leukaemia
     Dosage: UNK,IN MAR YEAR X
     Route: 065
  7. CYCLOPHOSPHAMIDE [Concomitant]
     Active Substance: CYCLOPHOSPHAMIDE
     Indication: Philadelphia positive acute lymphocytic leukaemia
     Dosage: UNK,IN MAR YEAR X
     Route: 065
  8. VINCRISTINE SULFATE [Concomitant]
     Active Substance: VINCRISTINE SULFATE
     Indication: Philadelphia positive acute lymphocytic leukaemia
     Dosage: UNK,IN MAR YEAR X
     Route: 065

REACTIONS (5)
  - Bone marrow necrosis [Unknown]
  - Altered state of consciousness [Recovering/Resolving]
  - Respiratory failure [Recovering/Resolving]
  - Colony stimulating factor therapy [Unknown]
  - Off label use [Unknown]
